FAERS Safety Report 6511947-4 (Version None)
Quarter: 2009Q4

REPORT INFORMATION
  Report Type: 
  Country: None (occurrence: None)
  Receive Date: 20091222
  Receipt Date: 20090616
  Transmission Date: 20100525
  Serious: No
  Sender: FDA-Public Use
  Company Number: US-ASTRAZENECA-2009UW15492

PATIENT
  Age: 14748 Day
  Sex: Male

DRUGS (4)
  1. CRESTOR [Suspect]
     Route: 048
     Dates: start: 20090520
  2. ATENOLOL [Concomitant]
  3. COZAAR [Concomitant]
  4. COUMADIN [Concomitant]

REACTIONS (2)
  - NIGHTMARE [None]
  - WHEEZING [None]
